FAERS Safety Report 7393238-5 (Version None)
Quarter: 2011Q2

REPORT INFORMATION
  Report Type: 
  Country: None (occurrence: None)
  Receive Date: 20110405
  Receipt Date: 20110325
  Transmission Date: 20111010
  Serious: Yes (Other)
  Sender: FDA-Public Use
  Company Number: US-BIOGENIDEC-2011BI005663

PATIENT
  Age: 40 Year
  Sex: Male

DRUGS (2)
  1. TYSABRI [Suspect]
     Indication: MULTIPLE SCLEROSIS
     Route: 042
     Dates: start: 20071119, end: 20100826
  2. TYSABRI [Suspect]
     Route: 042
     Dates: start: 20100826

REACTIONS (1)
  - COMPLEX PARTIAL SEIZURES [None]
